FAERS Safety Report 6042521-4 (Version None)
Quarter: 2009Q1

REPORT INFORMATION
  Report Type: 
  Country: None (occurrence: None)
  Receive Date: 20090117
  Receipt Date: 20090107
  Transmission Date: 20090719
  Serious: Yes (Hospitalization, Disabling)
  Sender: FDA-Public Use
  Company Number: CA-JNJFOC-20090101433

PATIENT
  Sex: Female
  Weight: 47 kg

DRUGS (3)
  1. REMICADE [Suspect]
     Indication: RHEUMATOID ARTHRITIS
     Dosage: 200 MG (DOSE FORM)
     Route: 042
  2. METHOTREXATE [Concomitant]
     Route: 058
  3. PREDNISONE [Concomitant]

REACTIONS (5)
  - CERVICAL VERTEBRAL FRACTURE [None]
  - EXTRADURAL HAEMATOMA [None]
  - FALL [None]
  - INTERVERTEBRAL DISC PROTRUSION [None]
  - MULTIPLE FRACTURES [None]
